FAERS Safety Report 20624978 (Version 2)
Quarter: 2022Q1

REPORT INFORMATION
  Report Type: Spontaneous
  Country: IT (occurrence: IT)
  Receive Date: 20220323
  Receipt Date: 20220324
  Transmission Date: 20220423
  Serious: Yes (Other)
  Sender: FDA-Public Use
  Company Number: IT-PIRAMAL ENTERPRISES LIMITED-2020-PEL-000200

PATIENT
  Age: 9 Month
  Sex: Male

DRUGS (9)
  1. SEVOFLURANE [Suspect]
     Active Substance: SEVOFLURANE
     Indication: Maintenance of anaesthesia
     Dosage: UNK
     Route: 055
     Dates: start: 20170710, end: 20170710
  2. ROCURONIUM BROMIDE [Suspect]
     Active Substance: ROCURONIUM BROMIDE
     Indication: Induction of anaesthesia
     Dosage: 5 MILLIGRAM, IN TOTAL
     Route: 042
     Dates: start: 20170710, end: 20170710
  3. FENTANYL [Suspect]
     Active Substance: FENTANYL
     Indication: Induction of anaesthesia
     Dosage: 10 MICROGRAM IN TOTAL
     Route: 042
     Dates: start: 20170710, end: 20170710
  4. MIDAZOLAM [Suspect]
     Active Substance: MIDAZOLAM
     Indication: Anaesthetic premedication
     Dosage: 4 MILLIGRAM TOTAL
     Route: 048
     Dates: start: 20170710, end: 20170710
  5. PROPOFOL [Suspect]
     Active Substance: PROPOFOL
     Indication: Induction of anaesthesia
     Dosage: 10 MICROGRAM ONCE, TOTAL
     Route: 042
     Dates: start: 20170710, end: 20170710
  6. TRAMADOL HYDROCHLORIDE [Suspect]
     Active Substance: TRAMADOL HYDROCHLORIDE
     Indication: Product used for unknown indication
     Dosage: 10 MILLIGRAM IN TOTAL
     Route: 042
     Dates: start: 20170710, end: 20170710
  7. RANITIDINE [Suspect]
     Active Substance: RANITIDINE
     Indication: Product used for unknown indication
     Dosage: 10 MILLIGRAM, TOTAL
     Route: 042
     Dates: start: 20170710, end: 20170710
  8. ULTIVA [Suspect]
     Active Substance: REMIFENTANIL HYDROCHLORIDE
     Indication: Maintenance of anaesthesia
     Route: 065
     Dates: start: 20170710, end: 20170710
  9. ACETAMINOPHEN [Concomitant]
     Active Substance: ACETAMINOPHEN
     Indication: Product used for unknown indication
     Dosage: 65 MILLIGRAM
     Route: 042
     Dates: start: 20170710, end: 20170710

REACTIONS (3)
  - Product administered to patient of inappropriate age [Unknown]
  - Off label use [Unknown]
  - Rash [Recovered/Resolved]

NARRATIVE: CASE EVENT DATE: 20170710
